FAERS Safety Report 8036296-7 (Version None)
Quarter: 2012Q1

REPORT INFORMATION
  Report Type: 
  Country: None (occurrence: None)
  Receive Date: 20120111
  Receipt Date: 20120106
  Transmission Date: 20120608
  Serious: Yes (Hospitalization, Disabling, Other)
  Sender: FDA-Public Use
  Company Number: PHEH2011US011926

PATIENT
  Sex: Male

DRUGS (1)
  1. GILENYA [Suspect]
     Indication: MULTIPLE SCLEROSIS
     Dosage: 0.5 MG, DAILY
     Route: 048
     Dates: start: 20110606

REACTIONS (6)
  - COMPLEX PARTIAL SEIZURES [None]
  - SOMNOLENCE [None]
  - MEMORY IMPAIRMENT [None]
  - EMOTIONAL DISORDER [None]
  - ALTERED STATE OF CONSCIOUSNESS [None]
  - MULTIPLE SCLEROSIS RELAPSE [None]
